FAERS Safety Report 12523065 (Version 2)
Quarter: 2016Q4

REPORT INFORMATION
  Report Type: Spontaneous
  Country: AT (occurrence: AT)
  Receive Date: 20160701
  Receipt Date: 20161006
  Transmission Date: 20170207
  Serious: Yes (Death)
  Sender: FDA-Public Use
  Company Number: PHHY2016AT090738

PATIENT
  Sex: Female
  Weight: 53 kg

DRUGS (1)
  1. ENTRESTO [Suspect]
     Active Substance: SACUBITRIL\VALSARTAN
     Indication: PRODUCT USED FOR UNKNOWN INDICATION
     Dosage: 100 MG, BID
     Route: 048
     Dates: start: 20160510

REACTIONS (2)
  - Ischaemic stroke [Fatal]
  - Cerebral ischaemia [Fatal]
